FAERS Safety Report 4801221-6 (Version None)
Quarter: 2005Q4

REPORT INFORMATION
  Report Type: 
  Country: None (occurrence: None)
  Receive Date: 20051011
  Receipt Date: 20050927
  Transmission Date: 20060501
  Serious: Yes (Other)
  Sender: FDA-Public Use
  Company Number: HQWYE738229SEP05

PATIENT
  Age: 18 Year
  Sex: Female

DRUGS (3)
  1. RAPAMUNE [Suspect]
     Indication: IMMUNOSUPPRESSANT DRUG THERAPY
     Dosage: A MEAN DOSE OF 2.4 MG/M^2/D WITH A MEAN TROUGH LEVEL 9.9 MCG/L
  2. MYCOPHENOLATE MOFETIL [Concomitant]
  3. METHYLPREDNISOLONE [Concomitant]

REACTIONS (2)
  - DISEASE RECURRENCE [None]
  - FOCAL GLOMERULOSCLEROSIS [None]
